FAERS Safety Report 25367440 (Version 1)
Quarter: 2025Q2

REPORT INFORMATION
  Report Type: Spontaneous
  Country: US (occurrence: US)
  Receive Date: 20250528
  Receipt Date: 20250528
  Transmission Date: 20250717
  Serious: No
  Sender: Unknown Manufacturer
  Company Number: US-MIRUM PHARMACEUTICALS, INC.-US-MIR-25-00025

PATIENT
  Age: 24 Year
  Sex: Female
  Weight: 68.7 kg

DRUGS (1)
  1. LIVMARLI [Suspect]
     Active Substance: MARALIXIBAT CHLORIDE
     Indication: Liver disorder
     Dosage: 38 MILLIGRAM, QD
     Route: 048
     Dates: start: 20250110

REACTIONS (5)
  - Dysgeusia [Unknown]
  - Eating disorder [Unknown]
  - Oropharyngeal discomfort [Unknown]
  - Nausea [Unknown]
  - Off label use [Unknown]

NARRATIVE: CASE EVENT DATE: 20250101
